FAERS Safety Report 24356653 (Version 1)
Quarter: 2024Q3

REPORT INFORMATION
  Report Type: Spontaneous
  Country: CN (occurrence: CN)
  Receive Date: 20240924
  Receipt Date: 20240924
  Transmission Date: 20241016
  Serious: Yes (Other)
  Sender: BAXTER
  Company Number: None

PATIENT
  Age: 12 Year
  Sex: Female
  Weight: 34 kg

DRUGS (1)
  1. MANNITOL [Suspect]
     Active Substance: MANNITOL
     Indication: Encephalitis viral
     Dosage: 85 ML, THRICE A DAY, DOSAGE FORM: INJECTION
     Route: 041
     Dates: start: 20240830, end: 20240830

REACTIONS (3)
  - Skin discolouration [Recovering/Resolving]
  - Cold sweat [Recovering/Resolving]
  - Pain in extremity [Recovering/Resolving]

NARRATIVE: CASE EVENT DATE: 20240830
